FAERS Safety Report 6380812-8 (Version None)
Quarter: 2009Q3

REPORT INFORMATION
  Report Type: 
  Country: None (occurrence: None)
  Receive Date: 20090925
  Receipt Date: 20090925
  Transmission Date: 20100115
  Serious: Yes (Hospitalization)
  Sender: FDA-Public Use
  Company Number: None

PATIENT
  Age: 68 Year
  Sex: Male
  Weight: 121.564 kg

DRUGS (4)
  1. CYTOXAN [Suspect]
     Indication: NON-HODGKIN'S LYMPHOMA
     Dosage: 750MG/M2 IV DAY 1
     Route: 042
     Dates: start: 20090728
  2. ADRIAMYCIN PFS [Suspect]
     Indication: NON-HODGKIN'S LYMPHOMA
     Dosage: 50MG/M2 IV DAY 1
     Route: 042
     Dates: start: 20090728
  3. PREDNISONE [Concomitant]
  4. NEULASTA [Concomitant]

REACTIONS (1)
  - FEBRILE NEUTROPENIA [None]
